FAERS Safety Report 5601593-9 (Version None)
Quarter: 2008Q1

REPORT INFORMATION
  Report Type: 
  Country: None (occurrence: None)
  Receive Date: 20080124
  Receipt Date: 20080122
  Transmission Date: 20080703
  Serious: Yes (Other)
  Sender: FDA-Public Use
  Company Number: US-SANOFI-SYNTHELABO-A03200800211

PATIENT
  Sex: Male
  Weight: 95.24 kg

DRUGS (5)
  1. METOPROLOL TARTRATE [Concomitant]
     Indication: DRUG USE FOR UNKNOWN INDICATION
     Route: 065
  2. CITALOPRAM [Concomitant]
     Route: 065
  3. VYTORIN [Concomitant]
     Indication: DRUG USE FOR UNKNOWN INDICATION
     Dosage: 10/40MG DAILY
  4. COUMADIN [Suspect]
     Indication: KNEE OPERATION
     Dosage: UNK
     Route: 065
     Dates: start: 20070401, end: 20070101
  5. PLAVIX [Suspect]
     Indication: STENT PLACEMENT
     Dosage: UNK
     Route: 048
     Dates: start: 20070601, end: 20080101

REACTIONS (2)
  - ASTHENIA [None]
  - HAEMOLYTIC ANAEMIA [None]
